FAERS Safety Report 16079172 (Version 2)
Quarter: 2019Q1

REPORT INFORMATION
  Report Type: Spontaneous
  Country: US (occurrence: US)
  Receive Date: 20190315
  Receipt Date: 20190329
  Transmission Date: 20190418
  Serious: Yes (Other)
  Sender: FDA-Public Use
  Company Number: US-PFIZER INC-2016517488

PATIENT
  Age: 76 Year
  Sex: Female
  Weight: 59 kg

DRUGS (9)
  1. LETAIRIS [Concomitant]
     Active Substance: AMBRISENTAN
     Dosage: 5 MG, DAILY
     Route: 048
  2. PROTONIX [Concomitant]
     Active Substance: PANTOPRAZOLE SODIUM
     Dosage: 20 MG, DAILY
     Route: 048
  3. LASIX [Concomitant]
     Active Substance: FUROSEMIDE
     Dosage: 20 MG, DAILY
     Route: 048
  4. MOTRIN [Concomitant]
     Active Substance: IBUPROFEN
     Dosage: 200 MG, AS NEEDED (TAKE 200 MG BY MOUTH EVERY 6 HOURS AS NEEDED)
     Route: 048
  5. TYVASO [Concomitant]
     Active Substance: TREPROSTINIL
     Dosage: (1.74 MG/2.9 ML) (0.6MG/ML) (INHALE 9 PUFFS SOLUTION AS DIRECTED FOUR TIMES DAILY)
  6. REVATIO [Suspect]
     Active Substance: SILDENAFIL CITRATE
     Indication: PULMONARY ARTERIAL HYPERTENSION
     Dosage: 20 MG, 3X/DAY
     Route: 048
  7. DURAGESIC [Concomitant]
     Active Substance: FENTANYL
     Dosage: (50MCG/HR PATCH) (APPLY 1 PATCH TO TOP OF SKIN AS DIRECTED EVERY 72 HOURS)
     Route: 062
  8. SYNTHROID [Concomitant]
     Active Substance: LEVOTHYROXINE SODIUM
     Dosage: 75 UG, DAILY
     Route: 048
  9. INFED [Concomitant]
     Active Substance: IRON DEXTRAN
     Dosage: 50 MG/ML, SINGLE (INJECT 50MG TO AREA(S) AS DIRECTED ONCE)

REACTIONS (4)
  - Rectal cancer [Recovering/Resolving]
  - Hypoacusis [Not Recovered/Not Resolved]
  - Asthenia [Recovering/Resolving]
  - Expired product administered [Unknown]

NARRATIVE: CASE EVENT DATE: 201812
